FAERS Safety Report 4385864-2 (Version None)
Quarter: 2004Q2

REPORT INFORMATION
  Report Type: 
  Country: None (occurrence: None)
  Receive Date: 20040622
  Receipt Date: 20040615
  Transmission Date: 20050107
  Serious: Yes (Hospitalization)
  Sender: FDA-Public Use
  Company Number: K200400883

PATIENT
  Age: 79 Year
  Sex: Female

DRUGS (5)
  1. ALTACE [Suspect]
     Dosage: 5 MG, QD, ORAL
     Route: 048
     Dates: start: 20040510, end: 20040516
  2. FERROUS SULFATE TAB [Concomitant]
  3. FUROSEMIDE [Concomitant]
  4. CALCICHEW D3 (COLECALCIFEROL, CALCIUM CARBONATE) [Concomitant]
  5. ASPIRIN [Concomitant]

REACTIONS (3)
  - FALL [None]
  - HYPOTENSION [None]
  - RENAL FAILURE ACUTE [None]
